FAERS Safety Report 20638873 (Version 3)
Quarter: 2022Q4

REPORT INFORMATION
  Report Type: Spontaneous
  Country: JP (occurrence: JP)
  Receive Date: 20220325
  Receipt Date: 20221206
  Transmission Date: 20230113
  Serious: Yes (Death, Other)
  Sender: FDA-Public Use
  Company Number: JP-JAZZ-2022-JP-009214

PATIENT
  Age: 60 Year
  Sex: Female
  Weight: 52.4 kg

DRUGS (3)
  1. DEFITELIO [Suspect]
     Active Substance: DEFIBROTIDE SODIUM
     Indication: Venoocclusive liver disease
     Dosage: 25 MILLIGRAM/KILOGRAM
     Route: 042
     Dates: start: 20220222, end: 20220323
  2. NAFAMOSTAT MESYLATE [Concomitant]
     Active Substance: NAFAMOSTAT MESYLATE
     Indication: Product used for unknown indication
     Dosage: UNK
     Dates: start: 20220315, end: 20220323
  3. NONTHRON [Concomitant]
     Indication: Product used for unknown indication
     Dosage: UNK
     Dates: start: 20220314, end: 20220324

REACTIONS (3)
  - Venoocclusive liver disease [Fatal]
  - Weight increased [Unknown]
  - Oedema [Unknown]

NARRATIVE: CASE EVENT DATE: 20220101
